FAERS Safety Report 5379792-3 (Version None)
Quarter: 2007Q3

REPORT INFORMATION
  Report Type: 
  Country: None (occurrence: None)
  Receive Date: 20070703
  Receipt Date: 20070620
  Transmission Date: 20080115
  Serious: Yes (Hospitalization)
  Sender: FDA-Public Use
  Company Number: GXKR2007CN05323

PATIENT
  Age: 79 Year
  Sex: Male

DRUGS (6)
  1. CEFUROXIME [Suspect]
     Dosage: 1500 MG, Q8H
  2. CEFOPERAZONE SODIUM [Suspect]
  3. SULBACTAM(SULBACTAM) [Suspect]
  4. AMIKIN [Suspect]
  5. RIFATER [Suspect]
     Indication: PULMONARY TUBERCULOSIS
  6. ETHAMBUTOL HYDROCHLORIDE [Suspect]
     Indication: PULMONARY TUBERCULOSIS

REACTIONS (8)
  - ARTHRALGIA [None]
  - ARTHRITIS FUNGAL [None]
  - CANDIDIASIS [None]
  - DISEASE RECURRENCE [None]
  - FEBRILE NEUTROPENIA [None]
  - HAEMORRHAGE [None]
  - JOINT SWELLING [None]
  - PULMONARY TUBERCULOSIS [None]
